FAERS Safety Report 6395569-4 (Version None)
Quarter: 2009Q4

REPORT INFORMATION
  Report Type: 
  Country: None (occurrence: None)
  Receive Date: 20091009
  Receipt Date: 20091001
  Transmission Date: 20100525
  Serious: Yes (Other)
  Sender: FDA-Public Use
  Company Number: GB-ABBOTT-09P-167-0600251-00

PATIENT
  Sex: Female

DRUGS (4)
  1. HUMIRA [Suspect]
     Indication: DRUG USE FOR UNKNOWN INDICATION
     Dates: start: 20090101
  2. HUMIRA [Suspect]
  3. ANTIHISTAMINES [Concomitant]
     Indication: SEASONAL ALLERGY
  4. CERAZETTE [Concomitant]
     Indication: CONTRACEPTION
     Route: 048
     Dates: start: 20090601

REACTIONS (7)
  - CHOKING SENSATION [None]
  - COUGH [None]
  - INFECTION [None]
  - PRURITUS [None]
  - RASH PAPULAR [None]
  - URTICARIA [None]
  - WHEEZING [None]
